FAERS Safety Report 25913554 (Version 2)
Quarter: 2025Q4

REPORT INFORMATION
  Report Type: Spontaneous
  Country: JP (occurrence: JP)
  Receive Date: 20251013
  Receipt Date: 20251121
  Transmission Date: 20260118
  Serious: Yes (Hospitalization)
  Sender: ROCHE
  Company Number: JP-CHUGAI-2025032204

PATIENT
  Age: 76 Year
  Sex: Male

DRUGS (6)
  1. TECENTRIQ [Suspect]
     Active Substance: ATEZOLIZUMAB
     Indication: Non-small cell lung cancer
     Dosage: UNK
     Route: 042
     Dates: start: 20240605, end: 2024
  2. TECENTRIQ [Suspect]
     Active Substance: ATEZOLIZUMAB
     Dosage: UNK
     Route: 042
     Dates: start: 20240801, end: 20250205
  3. CARBOPLATIN [Concomitant]
     Active Substance: CARBOPLATIN
     Indication: Non-small cell lung cancer
     Dosage: UNK
     Route: 042
     Dates: start: 20240605, end: 2024
  4. CARBOPLATIN [Concomitant]
     Active Substance: CARBOPLATIN
     Dosage: UNK
     Route: 042
     Dates: start: 20240801, end: 202501
  5. PEMETREXED DISODIUM HEMIPENTAHYDRATE [Concomitant]
     Active Substance: PEMETREXED DISODIUM HEMIPENTAHYDRATE
     Indication: Non-small cell lung cancer
     Dosage: UNK
     Route: 042
     Dates: start: 20240605, end: 2024
  6. PEMETREXED DISODIUM HEMIPENTAHYDRATE [Concomitant]
     Active Substance: PEMETREXED DISODIUM HEMIPENTAHYDRATE
     Dosage: UNK
     Route: 042
     Dates: start: 20240801, end: 202501

REACTIONS (1)
  - Duodenal ulcer [Recovered/Resolved]

NARRATIVE: CASE EVENT DATE: 20240605
